FAERS Safety Report 19493245 (Version 1)
Quarter: 2021Q3

REPORT INFORMATION
  Report Type: Spontaneous
  Country: DE (occurrence: DE)
  Receive Date: 20210705
  Receipt Date: 20210705
  Transmission Date: 20211014
  Serious: Yes (Hospitalization, Other)
  Sender: FDA-Public Use
  Company Number: DE-PFIZER INC-2021770573

PATIENT
  Age: 86 Year
  Sex: Male
  Weight: 74 kg

DRUGS (2)
  1. ALFUZOSIN AL [Suspect]
     Active Substance: ALFUZOSIN
     Dosage: 10 MG, 1X/DAY (1?0?0?0)
     Route: 048
  2. SERTRALINE HCL [Suspect]
     Active Substance: SERTRALINE HYDROCHLORIDE
     Dosage: 75 MG, 1X/DAY (50 MG, 1.5?0?0?0)
     Route: 048

REACTIONS (1)
  - Amaurosis fugax [Unknown]

NARRATIVE: CASE EVENT DATE: 20200712
